FAERS Safety Report 15822859 (Version 2)
Quarter: 2019Q1

REPORT INFORMATION
  Report Type: Report from Study
  Country: US (occurrence: US)
  Receive Date: 20190114
  Receipt Date: 20190121
  Transmission Date: 20190417
  Serious: No
  Sender: FDA-Public Use
  Company Number: PHEH2019US001111

PATIENT
  Sex: Male

DRUGS (1)
  1. ENTRESTO [Suspect]
     Active Substance: SACUBITRIL\VALSARTAN
     Indication: PRODUCT USED FOR UNKNOWN INDICATION
     Dosage: BID ((SACUBITRIL 24 MG AND VALSARTAN 26 MG) IN THE AM  (SACUBITRIL 49 MG AND VALSARTAN 51)IN PM
     Route: 048

REACTIONS (2)
  - Dyspnoea [Recovered/Resolved]
  - Wrong technique in product usage process [Unknown]
